FAERS Safety Report 14487669 (Version 5)
Quarter: 2019Q2

REPORT INFORMATION
  Report Type: Spontaneous
  Country: US (occurrence: US)
  Receive Date: 20180205
  Receipt Date: 20190624
  Transmission Date: 20190711
  Serious: Yes (Hospitalization, Other)
  Sender: FDA-Public Use
  Company Number: US-PFIZER INC-2018047759

PATIENT
  Age: 70 Year
  Sex: Female
  Weight: 72 kg

DRUGS (4)
  1. XELJANZ XR [Suspect]
     Active Substance: TOFACITINIB CITRATE
     Indication: RHEUMATOID ARTHRITIS
     Dosage: 11 MG, 1X/DAY
     Route: 048
     Dates: start: 201711
  2. XELJANZ XR [Suspect]
     Active Substance: TOFACITINIB CITRATE
     Dosage: 11 MG, 1X/DAY
     Dates: start: 201711
  3. XELJANZ XR [Suspect]
     Active Substance: TOFACITINIB CITRATE
     Dosage: 11 MG, 1X/DAY
     Route: 048
     Dates: start: 201711
  4. XELJANZ XR [Suspect]
     Active Substance: TOFACITINIB CITRATE
     Dosage: 10 MG, 1X/DAY
     Route: 048
     Dates: start: 20171127

REACTIONS (11)
  - Bacterial infection [Recovered/Resolved]
  - Decreased immune responsiveness [Unknown]
  - Oesophageal stenosis [Unknown]
  - Pneumonia [Recovered/Resolved]
  - Product prescribing error [Unknown]
  - Choking [Recovered/Resolved]
  - Escherichia urinary tract infection [Recovered/Resolved]
  - Ovarian disorder [Unknown]
  - Upper respiratory tract infection [Recovered/Resolved]
  - Vaginal infection [Recovered/Resolved]
  - Bronchitis [Recovered/Resolved]

NARRATIVE: CASE EVENT DATE: 201801
